FAERS Safety Report 10269660 (Version 1)
Quarter: 2014Q2

REPORT INFORMATION
  Report Type: Spontaneous
  Country: IN (occurrence: None)
  Receive Date: 20140625
  Receipt Date: 20140625
  Transmission Date: 20141212
  Serious: Yes (Other)
  Sender: FDA-Public Use
  Company Number: AUR-APL-2014-06658

PATIENT
  Age: 11 Year
  Sex: Female

DRUGS (1)
  1. LEVETIRACETAM [Suspect]
     Indication: TONIC CONVULSION
     Dosage: 40 MG/KG, DAILY, UNKNOWN

REACTIONS (2)
  - Substance-induced psychotic disorder [None]
  - Incorrect dose administered [None]
